FAERS Safety Report 18853431 (Version 2)
Quarter: 2021Q1

REPORT INFORMATION
  Report Type: Spontaneous
  Country: PR (occurrence: PR)
  Receive Date: 20210205
  Receipt Date: 20210226
  Transmission Date: 20210420
  Serious: Yes (Other)
  Sender: FDA-Public Use
  Company Number: PR-BAYER-2021-049595

PATIENT
  Age: 77 Year
  Sex: Female

DRUGS (2)
  1. STIVARGA [Suspect]
     Active Substance: REGORAFENIB
     Indication: HEPATOCELLULAR CARCINOMA
     Dosage: 40 MG DAILY ON 21 DAYS AND 7 DAYS^ REST
  2. STIVARGA [Suspect]
     Active Substance: REGORAFENIB
     Indication: HEPATOCELLULAR CARCINOMA
     Dosage: 160 MG DAILY
     Dates: start: 20200911

REACTIONS (7)
  - Skin ulcer [Unknown]
  - Mouth haemorrhage [Unknown]
  - Headache [Unknown]
  - Mouth ulceration [Unknown]
  - Hepatic neoplasm [Unknown]
  - Skin ulcer haemorrhage [Unknown]
  - Vaginal haemorrhage [Unknown]
